FAERS Safety Report 14309447 (Version 1)
Quarter: 2017Q4

REPORT INFORMATION
  Report Type: Spontaneous
  Country: IT (occurrence: IT)
  Receive Date: 20171220
  Receipt Date: 20171220
  Transmission Date: 20180321
  Serious: Yes (Other)
  Sender: FDA-Public Use
  Company Number: IT-TEVA-2017-IT-837481

PATIENT
  Age: 83 Year
  Sex: Female

DRUGS (10)
  1. LANSOX 15 MG CAPSULE RIGIDE [Concomitant]
     Route: 065
  2. BISOPROLOL FUMARATE. [Suspect]
     Active Substance: BISOPROLOL FUMARATE
     Indication: HYPERTENSION
     Dosage: DOSE OF 2.5 MG
     Route: 048
     Dates: start: 20170101, end: 20170203
  3. IRBESARTAN. [Suspect]
     Active Substance: IRBESARTAN
     Indication: HYPERTENSION
     Dosage: DOSE OF 150 MG
     Route: 048
     Dates: start: 20170101, end: 20170203
  4. NORVASC [Suspect]
     Active Substance: AMLODIPINE BESYLATE
     Indication: HYPERTENSION
     Dosage: DOSE OF 5 MG
     Route: 048
     Dates: start: 20170101, end: 20170203
  5. SEREUPIN [Concomitant]
     Active Substance: PAROXETINE HYDROCHLORIDE
     Route: 065
  6. FUROSEMIDE. [Concomitant]
     Active Substance: FUROSEMIDE
     Dosage: DOSE OF 50 MG
     Route: 048
  7. EXELON [Concomitant]
     Active Substance: RIVASTIGMINE TARTRATE
     Route: 062
  8. CARDIOASPIRIN [Concomitant]
     Active Substance: ASPIRIN
     Dosage: DOSE OF 100 MG
     Route: 048
  9. SUPRAX 400 MG COMPRESSE RIVESTITE [Concomitant]
     Route: 065
  10. COUMADIN [Concomitant]
     Active Substance: WARFARIN SODIUM
     Route: 048

REACTIONS (3)
  - Vomiting [Recovering/Resolving]
  - Hypotension [Recovering/Resolving]
  - Loss of consciousness [Recovering/Resolving]

NARRATIVE: CASE EVENT DATE: 20170203
